FAERS Safety Report 5526351-5 (Version None)
Quarter: 2007Q4

REPORT INFORMATION
  Report Type: 
  Country: None (occurrence: None)
  Receive Date: 20071127
  Receipt Date: 20071120
  Transmission Date: 20080405
  Serious: Yes (Hospitalization)
  Sender: FDA-Public Use
  Company Number: US-BAXTER-2007BH009068

PATIENT
  Age: 67 Year
  Sex: Female

DRUGS (4)
  1. DIANEAL [Suspect]
     Indication: PERITONEAL DIALYSIS
     Dosage: DOSE UNIT:UNKNOWN
     Route: 033
  2. DIANEAL [Suspect]
     Indication: PERITONEAL DIALYSIS
     Dosage: DOSE UNIT:UNKNOWN
     Route: 033
  3. HEPARIN [Concomitant]
     Indication: INDWELLING CATHETER MANAGEMENT
     Route: 033
  4. ACTIVASE [Concomitant]
     Indication: INDWELLING CATHETER MANAGEMENT
     Route: 065

REACTIONS (2)
  - CATHETER SITE INFECTION [None]
  - PERITONITIS BACTERIAL [None]
